FAERS Safety Report 11821071 (Version 1)
Quarter: 2015Q4

REPORT INFORMATION
  Report Type: Spontaneous
  Country: US (occurrence: US)
  Receive Date: 20151210
  Receipt Date: 20151210
  Transmission Date: 20160305
  Serious: No
  Sender: FDA-Public Use
  Company Number: US-JNJFOC-20150507333

PATIENT
  Sex: Female

DRUGS (21)
  1. IMBRUVICA [Suspect]
     Active Substance: IBRUTINIB
     Indication: CHRONIC LYMPHOCYTIC LEUKAEMIA
     Route: 048
     Dates: start: 20150601
  2. KEPPRA [Concomitant]
     Active Substance: LEVETIRACETAM
  3. VESICARE [Concomitant]
     Active Substance: SOLIFENACIN SUCCINATE
     Dates: start: 20150524
  4. ACETAMINOPHEN. [Concomitant]
     Active Substance: ACETAMINOPHEN
     Route: 048
  5. VITAMIN B12 [Concomitant]
     Active Substance: CYANOCOBALAMIN
  6. DORZOLAMIDE [Concomitant]
     Active Substance: DORZOLAMIDE
  7. IMBRUVICA [Suspect]
     Active Substance: IBRUTINIB
     Indication: CHRONIC LYMPHOCYTIC LEUKAEMIA
     Route: 048
     Dates: start: 20131218
  8. EMLA (LIDOCAINE/PRILOCAINE) [Concomitant]
     Dosage: APPLY TO PORT 30MINS BEFORE ACCESS
     Route: 061
     Dates: start: 20140424
  9. ASPIRIN. [Concomitant]
     Active Substance: ASPIRIN
     Route: 048
  10. PAMELOR [Concomitant]
     Active Substance: NORTRIPTYLINE HYDROCHLORIDE
     Route: 048
     Dates: start: 20150615
  11. MULTIVITAMIN AND MINERAL SUPPLEMENT [Concomitant]
     Active Substance: MINERALS\VITAMINS
  12. PRILOSEC [Concomitant]
     Active Substance: OMEPRAZOLE MAGNESIUM
     Route: 048
     Dates: start: 20150420
  13. ALPHAGAN P [Concomitant]
     Active Substance: BRIMONIDINE TARTRATE
  14. LEVOTHYROXINE. [Concomitant]
     Active Substance: LEVOTHYROXINE
     Route: 048
  15. LUMIGAN [Concomitant]
     Active Substance: BIMATOPROST
  16. FLUTICASONE PROPIONATE. [Concomitant]
     Active Substance: FLUTICASONE PROPIONATE
  17. CLARITIN [Concomitant]
     Active Substance: LORATADINE
     Route: 048
  18. NAPROSYN [Concomitant]
     Active Substance: NAPROXEN
  19. ROXICODONE [Concomitant]
     Active Substance: OXYCODONE HYDROCHLORIDE
     Dates: start: 20140923
  20. BACTRIM [Concomitant]
     Active Substance: SULFAMETHOXAZOLE\TRIMETHOPRIM
     Dates: start: 20150413
  21. LEXAPRO [Concomitant]
     Active Substance: ESCITALOPRAM OXALATE

REACTIONS (6)
  - Onychomycosis [Unknown]
  - Arthralgia [Unknown]
  - Neuropathy peripheral [Not Recovered/Not Resolved]
  - Onychomadesis [Not Recovered/Not Resolved]
  - Musculoskeletal discomfort [Unknown]
  - Cytopenia [Unknown]
